FAERS Safety Report 6075268-9 (Version None)
Quarter: 2009Q1

REPORT INFORMATION
  Report Type: 
  Country: None (occurrence: None)
  Receive Date: 20090212
  Receipt Date: 20090203
  Transmission Date: 20090719
  Serious: Yes (Other)
  Sender: FDA-Public Use
  Company Number: PHEH2009US01386

PATIENT
  Sex: Male

DRUGS (1)
  1. GENTEAL MODERATE LUBRICANT EYE DROPS (NVO) [Suspect]

REACTIONS (2)
  - EYE IRRITATION [None]
  - KERATOMILEUSIS [None]
